FAERS Safety Report 21901317 (Version 3)
Quarter: 2025Q3

REPORT INFORMATION
  Report Type: Report from Study
  Country: US (occurrence: US)
  Receive Date: 20230123
  Receipt Date: 20250805
  Transmission Date: 20251021
  Serious: Yes (Hospitalization, Other)
  Sender: TAKEDA
  Company Number: US-BAXTER-2014BAX073667

PATIENT
  Sex: Male

DRUGS (2)
  1. HUMAN IMMUNOGLOBULIN G [Suspect]
     Active Substance: HUMAN IMMUNOGLOBULIN G
     Indication: Primary immunodeficiency syndrome
     Dosage: 60 MILLILITER, 1/WEEK
  2. HYQVIA [Suspect]
     Active Substance: HUMAN IMMUNOGLOBULIN G\HYALURONIDASE (HUMAN RECOMBINANT)
     Indication: Primary immunodeficiency syndrome

REACTIONS (7)
  - Influenza [Not Recovered/Not Resolved]
  - Hodgkin^s disease [Unknown]
  - Hepatic mass [Unknown]
  - Kidney transplant rejection [Unknown]
  - Weight decreased [Unknown]
  - Alopecia [Unknown]
  - Cough [Unknown]
